FAERS Safety Report 9373081 (Version 1)
Quarter: 2013Q2

REPORT INFORMATION
  Report Type: Spontaneous
  Country: GB (occurrence: GB)
  Receive Date: 20130627
  Receipt Date: 20130627
  Transmission Date: 20140414
  Serious: Yes (Disabling)
  Sender: FDA-Public Use
  Company Number: GB-PFIZER INC-2013187318

PATIENT
  Age: 81 Year
  Sex: Female
  Weight: 64 kg

DRUGS (6)
  1. GEMCITABINE HYDROCHLORIDE [Suspect]
     Indication: ADENOCARCINOMA PANCREAS
     Dosage: 1000 MG/M2
     Route: 042
     Dates: start: 20121031, end: 20130501
  2. ATENOLOL [Concomitant]
     Dosage: 50 MG, 1X/DAY
  3. CODEINE [Concomitant]
     Dosage: UNK
  4. DEXAMETHASONE SODIUM PHOSPHATE [Concomitant]
     Dosage: 8 MG
     Route: 042
  5. DOMPERIDONE [Concomitant]
     Dosage: 10 MG, AS NECESSARY
  6. PARACETAMOL [Concomitant]
     Dosage: UNK

REACTIONS (2)
  - Retinal vein occlusion [Not Recovered/Not Resolved]
  - Blindness unilateral [Not Recovered/Not Resolved]
